FAERS Safety Report 11875155 (Version 1)
Quarter: 2015Q4

REPORT INFORMATION
  Report Type: Spontaneous
  Country: US (occurrence: None)
  Receive Date: 20151228
  Receipt Date: 20151228
  Transmission Date: 20160305
  Serious: No
  Sender: FDA-Public Use
  Company Number: None

PATIENT
  Age: 38 Year
  Sex: Female
  Weight: 77.11 kg

DRUGS (8)
  1. MELATONIN [Concomitant]
     Active Substance: MELATONIN
  2. LAMICTAL [Concomitant]
     Active Substance: LAMOTRIGINE
  3. LYRICA [Concomitant]
     Active Substance: PREGABALIN
  4. SYNTHROID [Suspect]
     Active Substance: LEVOTHYROXINE SODIUM
  5. PREMARIN [Concomitant]
     Active Substance: ESTROGENS, CONJUGATED
  6. BELSOMRA [Suspect]
     Active Substance: SUVOREXANT
     Indication: INITIAL INSOMNIA
     Route: 048
  7. NEURONTIN [Concomitant]
     Active Substance: GABAPENTIN
  8. OXYCODONE [Concomitant]
     Active Substance: OXYCODONE

REACTIONS (6)
  - Restlessness [None]
  - Eye pain [None]
  - Insomnia [None]
  - Vomiting [None]
  - Headache [None]
  - Agitation [None]

NARRATIVE: CASE EVENT DATE: 20151224
